FAERS Safety Report 5276201-X (Version None)
Quarter: 2007Q1

REPORT INFORMATION
  Report Type: 
  Country: None (occurrence: None)
  Receive Date: 20070322
  Receipt Date: 20070322
  Transmission Date: 20070707
  Serious: Yes (Life-Threatening, Hospitalization)
  Sender: FDA-Public Use
  Company Number: None

PATIENT
  Age: 53 Year
  Sex: Female
  Weight: 80.2867 kg

DRUGS (2)
  1. LEVAQUIN [Suspect]
     Indication: SINUSITIS
     Dates: start: 20061210, end: 20061214
  2. AMBIEN [Concomitant]

REACTIONS (6)
  - AORTIC DISSECTION [None]
  - ELECTROCARDIOGRAM QT PROLONGED [None]
  - EXERCISE ELECTROCARDIOGRAM ABNORMAL [None]
  - MYOCARDIAL INFARCTION [None]
  - PATENT DUCTUS ARTERIOSUS [None]
  - TROPONIN INCREASED [None]
